FAERS Safety Report 23404647 (Version 4)
Quarter: 2024Q1

REPORT INFORMATION
  Report Type: Spontaneous
  Country: US (occurrence: US)
  Receive Date: 20240116
  Receipt Date: 20240207
  Transmission Date: 20240410
  Serious: No
  Sender: FDA-Public Use
  Company Number: US-LUPIN PHARMACEUTICALS INC.-2024-00148

PATIENT

DRUGS (1)
  1. CEFIXIME [Suspect]
     Active Substance: CEFIXIME
     Indication: Dental care
     Dosage: 1 DOSAGE FORM, QD (400 MG CAPSULE)
     Route: 065
     Dates: start: 20240105, end: 20240106

REACTIONS (4)
  - Chest pain [Recovered/Resolved]
  - Abdominal pain upper [Not Recovered/Not Resolved]
  - Faeces discoloured [Recovered/Resolved]
  - Product use in unapproved indication [Unknown]

NARRATIVE: CASE EVENT DATE: 20240106
